FAERS Safety Report 8863759 (Version 1)
Quarter: 2012Q4

REPORT INFORMATION
  Report Type: 
  Country: US (occurrence: US)
  Receive Date: 20121024
  Receipt Date: 20121024
  Transmission Date: 20130627
  Serious: No
  Sender: FDA-Public Use
  Company Number: US-AMGEN-USASP2011063817

PATIENT
  Age: 56 Year
  Sex: Male

DRUGS (4)
  1. ENBREL [Suspect]
     Indication: PRODUCT USED FOR UNKNOWN INDICATION
     Dosage: 50 mg, 2 times/wk
     Route: 058
  2. GLUCOSAMINE [Concomitant]
     Dosage: 1000 mg, UNK
  3. FISH OIL [Concomitant]
     Dosage: 1000 mg, UNK
  4. TOPROL [Concomitant]
     Dosage: 100 mg, UNK

REACTIONS (1)
  - Arthralgia [Unknown]
